FAERS Safety Report 18763851 (Version 1)
Quarter: 2021Q1

REPORT INFORMATION
  Report Type: Spontaneous
  Country: PL (occurrence: PL)
  Receive Date: 20210120
  Receipt Date: 20210120
  Transmission Date: 20210419
  Serious: Yes (Hospitalization, Other)
  Sender: FDA-Public Use
  Company Number: NVSC2021PL005887

PATIENT

DRUGS (14)
  1. ACETYLSALICYLIC ACID [Concomitant]
     Active Substance: ASPIRIN
     Indication: PRODUCT USED FOR UNKNOWN INDICATION
     Dosage: 75 MG, QD (1X1 TABLET IN THE MORNING AT LEAST FOR 1 MONTH, OPTIMALLY FOR 3 MONTHS)
     Route: 065
  2. BISOPROLOL [Suspect]
     Active Substance: BISOPROLOL
     Dosage: 2.5 MG
     Route: 065
     Dates: start: 201909
  3. BISOPROLOL [Suspect]
     Active Substance: BISOPROLOL
     Dosage: 1.25 MG
     Route: 065
     Dates: start: 201910
  4. BISOPROLOL [Suspect]
     Active Substance: BISOPROLOL
     Dosage: 1.25 MG
     Route: 065
     Dates: start: 202003
  5. EPLERENONE. [Suspect]
     Active Substance: EPLERENONE
     Indication: PRODUCT USED FOR UNKNOWN INDICATION
     Dosage: 50 MG, QD
     Route: 065
  6. SACUBITRIL VALSARTAN SODIUM HYDRATE [Concomitant]
     Active Substance: SACUBITRIL\VALSARTAN
     Indication: PRODUCT USED FOR UNKNOWN INDICATION
     Dosage: 26 MG, BID (24/26 MG 2X1 TABLET)
     Route: 065
     Dates: start: 201910
  7. CLOPIDOGREL [Concomitant]
     Active Substance: CLOPIDOGREL BISULFATE
     Indication: PRODUCT USED FOR UNKNOWN INDICATION
     Dosage: 75 MG, QD (1 TABLET IN THE MORNING FOR 12 MONTHS)
     Route: 065
  8. TORASEMIDE [Suspect]
     Active Substance: TORSEMIDE
     Indication: PRODUCT USED FOR UNKNOWN INDICATION
     Dosage: 10 MG (1 HOUR BEFORE LUNCH. 1 TABLET IN THE MORNING 1 HOUR, BEFORE BREAKFAST)
     Route: 065
  9. EPLERENONE. [Suspect]
     Active Substance: EPLERENONE
     Dosage: 25 MG, QD (1 TABLET AT NOON)
     Route: 065
  10. ATORVASTATIN [Concomitant]
     Active Substance: ATORVASTATIN
     Indication: PRODUCT USED FOR UNKNOWN INDICATION
     Dosage: 20 MG, QD (1 TABLETS IN THE EVENING)
     Route: 065
  11. POTASSIUM CHLORIDE. [Concomitant]
     Active Substance: POTASSIUM CHLORIDE
     Indication: PRODUCT USED FOR UNKNOWN INDICATION
     Dosage: 2 UNK, QD (1?0?1)
     Route: 065
  12. TORASEMIDE [Suspect]
     Active Substance: TORSEMIDE
     Dosage: 20 MG (1 TABLET IN THE MORNING ON AN EMPTY STOMACH)
     Route: 065
  13. BISOPROLOL [Suspect]
     Active Substance: BISOPROLOL
     Indication: PRODUCT USED FOR UNKNOWN INDICATION
     Dosage: 1.25 MG (1/2?0 ?1/2 TABLETS)
     Route: 065
     Dates: start: 2018
  14. SACUBITRIL VALSARTAN SODIUM HYDRATE [Concomitant]
     Active Substance: SACUBITRIL\VALSARTAN
     Dosage: 51 MG (49/51)
     Route: 065
     Dates: start: 202003

REACTIONS (11)
  - Blood cholesterol increased [Unknown]
  - Alanine aminotransferase increased [Unknown]
  - Atrial fibrillation [Unknown]
  - Hypotension [Unknown]
  - International normalised ratio increased [Unknown]
  - Atrial thrombosis [Unknown]
  - Cachexia [Unknown]
  - Weight decreased [Unknown]
  - Yellow skin [Unknown]
  - Blood bilirubin increased [Unknown]
  - Hepatic failure [Unknown]

NARRATIVE: CASE EVENT DATE: 201910
